FAERS Safety Report 6981200-3 (Version None)
Quarter: 2010Q3

REPORT INFORMATION
  Report Type: 
  Country: None (occurrence: None)
  Receive Date: 20100914
  Receipt Date: 20100903
  Transmission Date: 20110219
  Serious: Yes (Hospitalization, Other)
  Sender: FDA-Public Use
  Company Number: US-PFIZER INC-2010082411

PATIENT
  Sex: Female

DRUGS (2)
  1. CHANTIX [Suspect]
     Indication: SMOKING CESSATION THERAPY
     Dosage: 1 MG, UNK
     Dates: start: 20070301, end: 20071001
  2. CHANTIX [Suspect]
     Dosage: UNK
     Dates: start: 20080101, end: 20080301

REACTIONS (2)
  - DEPRESSION [None]
  - SUICIDE ATTEMPT [None]
